FAERS Safety Report 4753486-7 (Version None)
Quarter: 2005Q3

REPORT INFORMATION
  Report Type: 
  Country: None (occurrence: None)
  Receive Date: 20050824
  Receipt Date: 20050816
  Transmission Date: 20060218
  Serious: Yes (Other)
  Sender: FDA-Public Use
  Company Number: 2005US000598

PATIENT
  Age: 43 Year
  Sex: Male

DRUGS (4)
  1. AMBISOME [Suspect]
     Indication: VISCERAL LEISHMANIASIS
     Dosage: 3.00 MG/KG, UID/QD, IV NOS
     Route: 042
     Dates: start: 20040408, end: 20040416
  2. KALETRA [Concomitant]
  3. ZERIT [Concomitant]
  4. EPIVIR [Concomitant]

REACTIONS (6)
  - ANAEMIA [None]
  - BIOPSY BONE MARROW ABNORMAL [None]
  - BLOOD CREATININE INCREASED [None]
  - BLOOD URIC ACID INCREASED [None]
  - LEUKOPENIA [None]
  - RENAL FAILURE [None]
